FAERS Safety Report 11103226 (Version 1)
Quarter: 2015Q2

REPORT INFORMATION
  Report Type: Spontaneous
  Country: PL (occurrence: PL)
  Receive Date: 20150511
  Receipt Date: 20150511
  Transmission Date: 20150821
  Serious: Yes (Other)
  Sender: FDA-Public Use
  Company Number: PHHY2015PL052911

PATIENT

DRUGS (2)
  1. EXJADE [Suspect]
     Active Substance: DEFERASIROX
     Dosage: 15.9 MG/KG OF BODY WEIGHT
     Route: 065
     Dates: start: 20141220
  2. EXJADE [Suspect]
     Active Substance: DEFERASIROX
     Indication: PRODUCT USED FOR UNKNOWN INDICATION
     Dosage: 15.9 MG/KG OF BODY WEIGHT
     Route: 065
     Dates: start: 20141103, end: 20141210

REACTIONS (1)
  - Appendicitis [Unknown]
